FAERS Safety Report 7978124-1 (Version None)
Quarter: 2011Q4

REPORT INFORMATION
  Report Type: 
  Country: None (occurrence: None)
  Receive Date: 20111212
  Receipt Date: 20111212
  Transmission Date: 20120403
  Serious: Yes (Hospitalization)
  Sender: FDA-Public Use
  Company Number: None

PATIENT
  Sex: Female
  Weight: 84.1 kg

DRUGS (8)
  1. ABILIFY [Concomitant]
  2. PROPRANOLOL [Concomitant]
  3. AMPYRA [Suspect]
     Indication: MULTIPLE SCLEROSIS
     Dosage: 10 MG Q 12H ORALLY SINCE 2010
     Route: 048
     Dates: start: 20100101
  4. DIVALPROEX SODIUM [Concomitant]
  5. VENLAFAXINE [Concomitant]
  6. SEROQUEL [Concomitant]
  7. ZOLPIDEM [Concomitant]
  8. OXAZEPAM [Concomitant]

REACTIONS (8)
  - PYREXIA [None]
  - CHROMATURIA [None]
  - DELUSION [None]
  - DIARRHOEA [None]
  - MUSCLE SPASMS [None]
  - DEPRESSED LEVEL OF CONSCIOUSNESS [None]
  - URINARY RETENTION [None]
  - DISORIENTATION [None]
